FAERS Safety Report 8083996-9 (Version None)
Quarter: 2012Q1

REPORT INFORMATION
  Report Type: 
  Country: None (occurrence: None)
  Receive Date: 20120128
  Receipt Date: 20110106
  Transmission Date: 20120608
  Serious: No
  Sender: FDA-Public Use
  Company Number: US-ABBOTT-11P-163-0696262-00

PATIENT
  Sex: Female
  Weight: 49.94 kg

DRUGS (4)
  1. METHOTREXATE [Concomitant]
     Indication: RHEUMATOID ARTHRITIS
     Route: 048
     Dates: end: 20101101
  2. NASONEX [Concomitant]
     Indication: SINUS DISORDER
  3. NAPROXEN [Concomitant]
     Indication: RHEUMATOID ARTHRITIS
  4. HUMIRA [Suspect]
     Indication: RHEUMATOID ARTHRITIS
     Route: 058
     Dates: start: 20051101, end: 20101101

REACTIONS (5)
  - PRURITUS [None]
  - ASTHMA [None]
  - SWELLING [None]
  - ERYTHEMA [None]
  - BURNING SENSATION [None]
